FAERS Safety Report 12694151 (Version 2)
Quarter: 2016Q4

REPORT INFORMATION
  Report Type: Spontaneous
  Country: US (occurrence: US)
  Receive Date: 20160829
  Receipt Date: 20161018
  Transmission Date: 20170207
  Serious: No
  Sender: FDA-Public Use
  Company Number: US-PFIZER INC-2016402471

PATIENT
  Age: 54 Year
  Sex: Female
  Weight: 51.7 kg

DRUGS (2)
  1. IBRANCE [Suspect]
     Active Substance: PALBOCICLIB
     Indication: BREAST CANCER FEMALE
     Dosage: 125 MG, CYCLIC (1D-21D Q 28D)
     Route: 048
     Dates: start: 20160428
  2. IBRANCE [Suspect]
     Active Substance: PALBOCICLIB
     Dosage: 125 MG, CYCLIC, (D1-D21 Q28 D)
     Route: 048
     Dates: start: 20160428

REACTIONS (1)
  - Anaemia [Unknown]
